FAERS Safety Report 24699701 (Version 1)
Quarter: 2024Q4

REPORT INFORMATION
  Report Type: Spontaneous
  Country: US (occurrence: US)
  Receive Date: 20241205
  Receipt Date: 20241205
  Transmission Date: 20250114
  Serious: No
  Sender: CELLTRION
  Company Number: US-CELLTRION INC.-2024US021717

PATIENT

DRUGS (1)
  1. ZYMFENTRA [Suspect]
     Active Substance: INFLIXIMAB-DYYB
     Indication: Crohn^s disease
     Dosage: 120 MG ONCE EVERY TWO WEEKS (FIRST WEEK OF AUGUST - ONGOING)
     Route: 058
     Dates: start: 202408

REACTIONS (3)
  - Accidental exposure to product [Not Recovered/Not Resolved]
  - Exposure via skin contact [Not Recovered/Not Resolved]
  - Incorrect dose administered by product [Not Recovered/Not Resolved]

NARRATIVE: CASE EVENT DATE: 20240905
